FAERS Safety Report 5757845-5 (Version None)
Quarter: 2008Q2

REPORT INFORMATION
  Report Type: 
  Country: None (occurrence: None)
  Receive Date: 20080603
  Receipt Date: 20080528
  Transmission Date: 20081010
  Serious: Yes (Other)
  Sender: FDA-Public Use
  Company Number: PHNU2008DE01437

PATIENT
  Age: 67 Year
  Sex: Female

DRUGS (4)
  1. PROVAS [Suspect]
     Indication: HYPERTENSION
     Dosage: 40 MG, QD
     Route: 048
     Dates: start: 20080315, end: 20080325
  2. PROVAS [Suspect]
     Dosage: 80 MG/D
     Route: 048
     Dates: start: 20080326
  3. LEVOTHYROXINE SODIUM [Concomitant]
     Indication: AUTOIMMUNE THYROIDITIS
     Dosage: 50-70 ?G
     Dates: start: 20000101
  4. HOMEOPATIC PREPARATION [Concomitant]
     Indication: HYPERTENSION
     Dosage: UNK
     Route: 065

REACTIONS (3)
  - ANGINA PECTORIS [None]
  - ARRHYTHMIA [None]
  - BLOOD PRESSURE INCREASED [None]
